FAERS Safety Report 16249619 (Version 2)
Quarter: 2019Q2

REPORT INFORMATION
  Report Type: Spontaneous
  Country: FR (occurrence: FR)
  Receive Date: 20190429
  Receipt Date: 20190607
  Transmission Date: 20190711
  Serious: Yes (Hospitalization)
  Sender: FDA-Public Use
  Company Number: FR-MYLANLABS-2019M1040280

PATIENT
  Age: 90 Year
  Sex: Male

DRUGS (4)
  1. SOLUPRED                           /00016201/ [Suspect]
     Active Substance: PREDNISOLONE
     Indication: LUNG INFECTION
     Dosage: UNK
     Route: 048
     Dates: start: 20111103, end: 20111221
  2. EXTOVYL [Suspect]
     Active Substance: BETAHISTINE MESILATE
     Indication: LUNG INFECTION
  3. AZITHROMYCIN ANHYDROUS. [Suspect]
     Active Substance: AZITHROMYCIN ANHYDROUS
     Indication: LUNG INFECTION
     Dosage: UNK
     Route: 048
     Dates: start: 20111103, end: 20111220
  4. EXTOVYL [Suspect]
     Active Substance: BETAHISTINE MESILATE
     Indication: DIZZINESS
     Dosage: UNK
     Route: 048
     Dates: start: 20111110, end: 20111220

REACTIONS (2)
  - Eosinophilia [Recovering/Resolving]
  - Rash maculo-papular [Recovering/Resolving]

NARRATIVE: CASE EVENT DATE: 20111220
